FAERS Safety Report 8810091 (Version 2)
Quarter: 2013Q1

REPORT INFORMATION
  Report Type: Report from Study
  Country: US (occurrence: US)
  Receive Date: 20120926
  Receipt Date: 20130326
  Transmission Date: 20140127
  Serious: Yes (Other)
  Sender: FDA-Public Use
  Company Number: US-JNJFOC-20120909342

PATIENT
  Sex: Female

DRUGS (8)
  1. STELARA [Suspect]
     Indication: PSORIASIS
     Route: 058
     Dates: start: 201112, end: 20120909
  2. METHOTREXATE [Concomitant]
  3. VITAMIN D [Concomitant]
     Indication: MEDICAL DIET
  4. FOLIC ACID [Concomitant]
     Indication: MEDICAL DIET
  5. ELAVIL [Concomitant]
     Indication: MIGRAINE
  6. MOBIC [Concomitant]
     Indication: OSTEOARTHRITIS
  7. MOBIC [Concomitant]
     Indication: RHEUMATOID ARTHRITIS
  8. LOSARTAN [Concomitant]
     Indication: MITRAL VALVE INCOMPETENCE

REACTIONS (5)
  - Eczema [Recovering/Resolving]
  - Pustular psoriasis [Recovering/Resolving]
  - Rash [Recovering/Resolving]
  - Rheumatoid arthritis [Not Recovered/Not Resolved]
  - Psoriasis [Recovering/Resolving]
